FAERS Safety Report 25864876 (Version 1)
Quarter: 2025Q3

REPORT INFORMATION
  Report Type: Spontaneous
  Country: BR (occurrence: BR)
  Receive Date: 20250930
  Receipt Date: 20250930
  Transmission Date: 20251020
  Serious: Yes (Other)
  Sender: SCIEGEN PHARMACEUTICALS INC
  Company Number: BR-SCIEGENP-2025SCLIT00303

PATIENT
  Age: 4 Year
  Sex: Female

DRUGS (1)
  1. DIVALPROEX SODIUM [Suspect]
     Active Substance: DIVALPROEX SODIUM
     Indication: Product used for unknown indication
     Route: 065

REACTIONS (2)
  - Depressed level of consciousness [Recovered/Resolved]
  - Toxicity to various agents [Unknown]
